FAERS Safety Report 6360388-1 (Version None)
Quarter: 2009Q3

REPORT INFORMATION
  Report Type: 
  Country: None (occurrence: None)
  Receive Date: 20090917
  Receipt Date: 20090910
  Transmission Date: 20100115
  Serious: Yes (Other)
  Sender: FDA-Public Use
  Company Number: US-AMGEN-QUU363951

PATIENT
  Sex: Female

DRUGS (5)
  1. ENBREL [Suspect]
     Indication: PSORIATIC ARTHROPATHY
     Route: 058
     Dates: start: 20080101
  2. ENBREL [Suspect]
     Indication: PSORIASIS
  3. UNSPECIFIED PAIN MEDICATION [Concomitant]
  4. SULFADIAZINE [Concomitant]
     Route: 048
  5. HUMIRA [Concomitant]

REACTIONS (7)
  - ABASIA [None]
  - DRUG INEFFECTIVE [None]
  - FLUID RETENTION [None]
  - INJECTION SITE PAIN [None]
  - JOINT SWELLING [None]
  - MUSCULOSKELETAL PAIN [None]
  - PSORIATIC ARTHROPATHY [None]
